FAERS Safety Report 6750025-6 (Version None)
Quarter: 2010Q2

REPORT INFORMATION
  Report Type: 
  Country: None (occurrence: None)
  Receive Date: 20100527
  Receipt Date: 20100527
  Transmission Date: 20101027
  Serious: No
  Sender: FDA-Public Use
  Company Number: None

PATIENT
  Age: 79 Year
  Sex: Male

DRUGS (1)
  1. AMPICILLIN AND SULBACTAM [Suspect]
     Indication: SKIN INFECTION
     Dates: start: 20100523, end: 20100523

REACTIONS (7)
  - ASTHENIA [None]
  - BLOOD PRESSURE SYSTOLIC DECREASED [None]
  - ERYTHEMA [None]
  - INFUSION RELATED REACTION [None]
  - PRURITUS [None]
  - RESPIRATORY DEPRESSION [None]
  - URTICARIA [None]
